FAERS Safety Report 4746593-6 (Version None)
Quarter: 2005Q3

REPORT INFORMATION
  Report Type: 
  Country: None (occurrence: None)
  Receive Date: 20050815
  Receipt Date: 20050802
  Transmission Date: 20060218
  Serious: Yes (Other)
  Sender: FDA-Public Use
  Company Number: MC200500675

PATIENT
  Age: 79 Year
  Sex: Female

DRUGS (3)
  1. BIVALIRUDIN (BIVALIRUDIN ) INJECTION [Suspect]
     Dosage: SEE IMAGE
  2. HEPARIN [Concomitant]
  3. EPTIFIBATIDE (EPTIFIBATIDE) [Concomitant]

REACTIONS (6)
  - ANAEMIA [None]
  - BLOOD FIBRINOGEN DECREASED [None]
  - INTERNATIONAL NORMALISED RATIO INCREASED [None]
  - PNEUMONIA HAEMOPHILUS [None]
  - POST PROCEDURAL HAEMORRHAGE [None]
  - PROTHROMBIN TIME PROLONGED [None]
